FAERS Safety Report 9393395 (Version 1)
Quarter: 2013Q3

REPORT INFORMATION
  Report Type: Spontaneous
  Country: US (occurrence: None)
  Receive Date: 20130705
  Receipt Date: 20130705
  Transmission Date: 20140515
  Serious: Yes (Hospitalization)
  Sender: FDA-Public Use
  Company Number: GB-023368

PATIENT
  Age: 81 Year
  Sex: Male

DRUGS (11)
  1. CHLORAMBUCIL [Suspect]
     Indication: CHRONIC LYMPHOCYTIC LEUKAEMIA
     Route: 048
     Dates: start: 20100920
  2. ALLOPURINOL [Concomitant]
  3. FOLIC ACID (FOLIC ACID) [Concomitant]
  4. MULTI VITAMIN (MULTIVITAMINS, COMBINATIONS) [Concomitant]
  5. TAMSULOSIN (TAMSULOSIN) [Concomitant]
  6. CO-AMILOFRUSE (AMILORIDE) [Concomitant]
  7. BISOPROLOL (BISOPROLOL) [Concomitant]
  8. SIMVADOR (SIMVASTATIN) [Concomitant]
  9. FINASTERIDE (FINASTERIDE) [Concomitant]
  10. DOXYCYCLINE (DOXYCYCLINE) [Concomitant]
  11. GCSF (OTHER IMMUNOSTIMULANTS) [Concomitant]

REACTIONS (2)
  - Lower respiratory tract infection [None]
  - Neutropenia [None]
